FAERS Safety Report 5006672-5 (Version None)
Quarter: 2006Q2

REPORT INFORMATION
  Report Type: 
  Country: None (occurrence: None)
  Receive Date: 20060519
  Receipt Date: 20060505
  Transmission Date: 20061013
  Serious: Yes (Hospitalization)
  Sender: FDA-Public Use
  Company Number: CH-ROCHE-447035

PATIENT
  Age: 90 Year
  Sex: Female
  Weight: 60 kg

DRUGS (12)
  1. TORSEMIDE [Suspect]
     Indication: DRUG USE FOR UNKNOWN INDICATION
     Route: 048
     Dates: end: 20040820
  2. CARVEDILOL [Interacting]
     Indication: DRUG USE FOR UNKNOWN INDICATION
     Route: 048
     Dates: start: 20040806, end: 20040821
  3. TEGRETOL [Interacting]
     Indication: TRIGEMINAL NEURALGIA
     Route: 048
     Dates: end: 20040826
  4. ATACAND [Interacting]
     Indication: ESSENTIAL HYPERTENSION
     Route: 048
     Dates: start: 20040807, end: 20040812
  5. ATACAND HCT [Interacting]
     Indication: DRUG USE FOR UNKNOWN INDICATION
     Route: 048
     Dates: start: 20040813, end: 20040824
  6. NORVASC [Interacting]
     Indication: DRUG USE FOR UNKNOWN INDICATION
     Route: 048
     Dates: start: 20040815
  7. NITRODERM [Concomitant]
     Indication: ANGINA PECTORIS
     Route: 062
  8. RIVOTRIL [Concomitant]
     Indication: TRIGEMINAL NEURALGIA
     Route: 048
     Dates: start: 20040827
  9. PLAVIX [Concomitant]
     Route: 048
  10. TOLVON [Concomitant]
     Route: 048
     Dates: start: 20040807
  11. SELIPRAN [Concomitant]
     Indication: HYPERLIPIDAEMIA
     Route: 048
  12. STILNOX [Concomitant]
     Route: 048

REACTIONS (4)
  - CONDITION AGGRAVATED [None]
  - DRUG INEFFECTIVE [None]
  - DRUG INTERACTION [None]
  - HYPERTENSION [None]
